FAERS Safety Report 22172368 (Version 2)
Quarter: 2023Q2

REPORT INFORMATION
  Report Type: Spontaneous
  Country: CN (occurrence: CN)
  Receive Date: 20230404
  Receipt Date: 20230412
  Transmission Date: 20230722
  Serious: Yes (Hospitalization, Other)
  Sender: FDA-Public Use
  Company Number: CN-MLMSERVICE-20230328-4193653-1

PATIENT
  Age: 10 Month
  Sex: Male

DRUGS (9)
  1. CEFOPERAZONE SODIUM\SULBACTAM SODIUM [Suspect]
     Active Substance: CEFOPERAZONE SODIUM\SULBACTAM SODIUM
     Indication: Kawasaki^s disease
     Dosage: 100 MG/KG, 1X/DAY
     Route: 042
  2. METHYLPREDNISOLONE SODIUM SUCCINATE [Suspect]
     Active Substance: METHYLPREDNISOLONE SODIUM SUCCINATE
     Indication: Kawasaki^s disease
     Dosage: 2 MG/KG, 1X/DAY
     Route: 042
  3. MEZLOCILLIN SODIUM [Suspect]
     Active Substance: MEZLOCILLIN SODIUM
     Indication: Antibiotic therapy
     Dosage: 100 MG/KG, 1X/DAY
     Route: 042
  4. CEFOTAXIME SODIUM\SULBACTAM SODIUM [Suspect]
     Active Substance: CEFOTAXIME SODIUM\SULBACTAM SODIUM
     Indication: Antibiotic therapy
     Dosage: 100 MG/KG, DAILY
  5. PREDNISONE [Suspect]
     Active Substance: PREDNISONE
     Indication: Kawasaki^s disease
     Dosage: 2 MG/KG, DAILY
     Route: 048
  6. PREDNISONE [Suspect]
     Active Substance: PREDNISONE
     Dosage: TAPERING IN THE NEXT FEW DAYS
     Route: 048
  7. ALBUMIN HUMAN [Concomitant]
     Active Substance: ALBUMIN HUMAN
     Indication: Hypoalbuminaemia
     Dosage: UNK
  8. ASPIRIN [Concomitant]
     Active Substance: ASPIRIN
     Indication: Kawasaki^s disease
     Dosage: 5 MG/KG, 1X/DAY
  9. CLOPIDOGREL [Concomitant]
     Active Substance: CLOPIDOGREL BISULFATE
     Indication: Thrombosis prophylaxis
     Dosage: UNK

REACTIONS (5)
  - Acinetobacter infection [Recovered/Resolved]
  - Arthritis bacterial [Recovered/Resolved]
  - Off label use [Unknown]
  - Drug ineffective for unapproved indication [Unknown]
  - Off label use [Unknown]
